FAERS Safety Report 4811731-3 (Version None)
Quarter: 2005Q4

REPORT INFORMATION
  Report Type: 
  Country: None (occurrence: None)
  Receive Date: 20051025
  Receipt Date: 20050915
  Transmission Date: 20060501
  Serious: Yes (Other)
  Sender: FDA-Public Use
  Company Number: 12683

PATIENT
  Age: 37 Year
  Sex: Male

DRUGS (4)
  1. VINCRISTINE INJ [Suspect]
     Indication: CHEMOTHERAPY
     Dosage: 2 MG DAILY
  2. METHOTREXATE [Suspect]
     Indication: CHEMOTHERAPY
  3. CYTARABINE [Suspect]
     Indication: CHEMOTHERAPY
     Dosage: 32 MG DAILY PO
     Route: 048
  4. IFOSFAMIDE [Suspect]
     Indication: CHEMOTHERAPY

REACTIONS (1)
  - NEUTROPENIA [None]
